FAERS Safety Report 9382215 (Version 1)
Quarter: 2013Q3

REPORT INFORMATION
  Report Type: Spontaneous
  Country: US (occurrence: US)
  Receive Date: 20130703
  Receipt Date: 20130703
  Transmission Date: 20140515
  Serious: No
  Sender: FDA-Public Use
  Company Number: US-009507513-1307USA001250

PATIENT
  Sex: Male

DRUGS (1)
  1. COSOPT [Suspect]
     Dosage: 1 GTT,  OU BID
     Dates: start: 20110315, end: 20110705

REACTIONS (3)
  - Eye oedema [Unknown]
  - Eye discharge [Unknown]
  - Ocular hyperaemia [Unknown]
